FAERS Safety Report 9815366 (Version 1)
Quarter: 2014Q1

REPORT INFORMATION
  Report Type: Spontaneous
  Country: CZ (occurrence: CZ)
  Receive Date: 20140114
  Receipt Date: 20140114
  Transmission Date: 20141002
  Serious: Yes (Other)
  Sender: FDA-Public Use
  Company Number: CZ-CELGENEUS-217-21880-14010224

PATIENT
  Age: 53 Year
  Sex: Male

DRUGS (9)
  1. REVLIMID [Suspect]
     Indication: PLASMA CELL MYELOMA
     Route: 048
     Dates: start: 201005
  2. REVLIMID [Suspect]
     Dosage: 10 MILLIGRAM
     Route: 048
     Dates: start: 201109, end: 201209
  3. DEXAMETHASONE [Concomitant]
     Indication: PLASMA CELL MYELOMA
     Route: 065
     Dates: start: 201005
  4. DEXAMETHASONE [Concomitant]
     Route: 065
     Dates: start: 201209
  5. CYCLOPHOSPHAMIDE [Concomitant]
     Indication: PLASMA CELL MYELOMA
     Route: 065
  6. CYCLOPHOSPHAMIDE [Concomitant]
     Route: 065
     Dates: start: 201209
  7. CLODRONATE [Concomitant]
     Indication: PRODUCT USED FOR UNKNOWN INDICATION
     Route: 048
  8. CALTRATE [Concomitant]
     Indication: PRODUCT USED FOR UNKNOWN INDICATION
     Route: 065
  9. HIGH DOSE CHEMOTHERAPY [Concomitant]
     Indication: PLASMA CELL MYELOMA
     Route: 065
     Dates: start: 201011

REACTIONS (2)
  - Pathological fracture [Recovering/Resolving]
  - Plasma cell myeloma [Recovering/Resolving]
